FAERS Safety Report 13496010 (Version 1)
Quarter: 2017Q2

REPORT INFORMATION
  Report Type: Spontaneous
  Country: CN (occurrence: CN)
  Receive Date: 20170428
  Receipt Date: 20170428
  Transmission Date: 20170830
  Serious: Yes (Life-Threatening, Hospitalization, Other)
  Sender: FDA-Public Use
  Company Number: CN-ASTELLAS-2017US016199

PATIENT
  Age: 65 Year
  Sex: Male

DRUGS (3)
  1. PROGRAF [Suspect]
     Active Substance: TACROLIMUS\TACROLIMUS ANHYDROUS
     Indication: PROPHYLAXIS AGAINST TRANSPLANT REJECTION
     Dosage: 3 MG (DAILY DOSE), TWICE DAILY
     Route: 048
     Dates: start: 20110501, end: 20170416
  2. PROGRAF [Suspect]
     Active Substance: TACROLIMUS\TACROLIMUS ANHYDROUS
     Dosage: 3 MG (DAILY DOSE), TWICE DAILY
     Route: 048
     Dates: start: 20170418
  3. PROGRAF [Suspect]
     Active Substance: TACROLIMUS\TACROLIMUS ANHYDROUS
     Dosage: 4.5 MG (DAILY DOSE), THRICE DAILY
     Route: 048
     Dates: start: 20170417, end: 20170417

REACTIONS (3)
  - Haemolytic anaemia [Not Recovered/Not Resolved]
  - White blood cell count increased [Unknown]
  - Overdose [Unknown]

NARRATIVE: CASE EVENT DATE: 20170417
